FAERS Safety Report 5946572-7 (Version None)
Quarter: 2008Q4

REPORT INFORMATION
  Report Type: 
  Country: None (occurrence: None)
  Receive Date: 20081110
  Receipt Date: 20081103
  Transmission Date: 20090506
  Serious: Yes (Other)
  Sender: FDA-Public Use
  Company Number: US-ELI_LILLY_AND_COMPANY-US200811000181

PATIENT
  Sex: Female

DRUGS (4)
  1. HUMALOG [Suspect]
  2. LISINOPRIL [Concomitant]
     Indication: CARDIAC DISORDER
     Dosage: 20 MG, DAILY (1/D)
  3. TIMOLOL [Concomitant]
  4. PRAVASTATIN [Concomitant]
     Indication: BLOOD CHOLESTEROL

REACTIONS (2)
  - BLOOD TRIGLYCERIDES INCREASED [None]
  - RETINAL HAEMORRHAGE [None]
